FAERS Safety Report 4789303-9 (Version None)
Quarter: 2005Q3

REPORT INFORMATION
  Report Type: 
  Country: None (occurrence: None)
  Receive Date: 20050929
  Receipt Date: 20050822
  Transmission Date: 20060218
  Serious: No
  Sender: FDA-Public Use
  Company Number: 05P-163-0308847-00

PATIENT
  Age: 60 Year
  Sex: Female
  Weight: 68.9467 kg

DRUGS (8)
  1. HUMIRA [Suspect]
     Indication: RHEUMATOID ARTHRITIS
     Dosage: 40 MG, 1 IN 2 WK, SUBCUTANEOUS
     Route: 058
     Dates: start: 20030423, end: 20041001
  2. HUMIRA [Suspect]
     Indication: RHEUMATOID ARTHRITIS
     Dosage: 40 MG, 1 IN 2 WK, SUBCUTANEOUS
     Route: 058
     Dates: start: 20040101
  3. ESTROGENS CONJUGATED [Concomitant]
  4. THYROID TAB [Concomitant]
  5. ATENOLOL [Concomitant]
  6. SULFASALAZINE [Concomitant]
  7. MELOXICAM [Concomitant]
  8. PANTOPRAZOLE [Concomitant]

REACTIONS (2)
  - BRONCHITIS [None]
  - INJECTION SITE HAEMORRHAGE [None]
